FAERS Safety Report 8787074 (Version 2)
Quarter: 2012Q4

REPORT INFORMATION
  Report Type: Report from Study
  Country: GB (occurrence: GB)
  Receive Date: 20120915
  Receipt Date: 20121009
  Transmission Date: 20130627
  Serious: Yes (Other)
  Sender: FDA-Public Use
  Company Number: GB-TEVA-358323ISR

PATIENT
  Age: 62 Year
  Sex: Male

DRUGS (4)
  1. CEP 701 [Suspect]
     Dosage: Lestaurtinib (CEP-701) or Placebo
     Dates: start: 20120713, end: 20120720
  2. CEP 701 [Suspect]
     Dosage: Lestaurtinib (CEP-701) or Placebo
     Dates: start: 20120722, end: 20120822
  3. DAUNORUBICIN [Suspect]
  4. ARA-C [Suspect]

REACTIONS (1)
  - Thrombocytopenia [Recovered/Resolved]
